FAERS Safety Report 9680742 (Version 4)
Quarter: 2014Q1

REPORT INFORMATION
  Report Type: Report from Study
  Country: IN (occurrence: IN)
  Receive Date: 20131111
  Receipt Date: 20140219
  Transmission Date: 20141002
  Serious: Yes (Other)
  Sender: FDA-Public Use
  Company Number: PHHY2013IN124054

PATIENT
  Age: 41 Year
  Sex: Male
  Weight: 53.3 kg

DRUGS (12)
  1. SIMULECT [Suspect]
     Indication: RENAL TRANSPLANT
     Dosage: UNK UKN, UNK
     Dates: start: 20110731
  2. MYCOPHENOLATE MOFETIL [Suspect]
     Indication: RENAL TRANSPLANT
     Dosage: 500 MG, TID
     Dates: start: 20110731
  3. MYCOPHENOLATE MOFETIL [Suspect]
     Dosage: 500 MG, TID
     Dates: start: 20110815
  4. MYCOPHENOLATE MOFETIL [Suspect]
     Dosage: 500 MG, TID
     Dates: start: 20110907
  5. TACROLIMUS [Suspect]
     Indication: IMMUNOSUPPRESSION
     Dosage: 0.1 MG/KG BODY WEIGHT
     Dates: start: 20110731
  6. TACROLIMUS [Suspect]
     Indication: RENAL TRANSPLANT
     Dosage: 0.09 MG/KG BODY WEIGHT
     Dates: start: 20110815
  7. STEROID [Concomitant]
     Dosage: 30 MG, UNK
     Dates: start: 20110731
  8. STEROID [Concomitant]
     Dosage: 25 MG, UNK
     Dates: start: 20110815
  9. STEROID [Concomitant]
     Dosage: 25 MG, UNK
     Dates: start: 20110907
  10. SEPTRAN [Concomitant]
     Dosage: UNK
  11. ANTIHYPERTENSIVES [Concomitant]
     Dosage: UNK
  12. ANTIBIOTICS [Concomitant]
     Dosage: UNK

REACTIONS (9)
  - Hypertensive nephropathy [Recovered/Resolved]
  - Gastroenteritis [Recovered/Resolved]
  - Gastritis erosive [Recovered/Resolved]
  - Gastric ulcer [Recovered/Resolved]
  - Urine output increased [Recovered/Resolved]
  - Heart rate increased [Recovered/Resolved]
  - Immunosuppressant drug level increased [Recovered/Resolved]
  - Haemoglobin decreased [Recovered/Resolved]
  - Asthenia [Recovered/Resolved]
